FAERS Safety Report 6877331-9 (Version None)
Quarter: 2010Q3

REPORT INFORMATION
  Report Type: 
  Country: None (occurrence: None)
  Receive Date: 20100727
  Receipt Date: 20090902
  Transmission Date: 20110219
  Serious: No
  Sender: FDA-Public Use
  Company Number: US-ABBOTT-09P-163-0595797-00

PATIENT
  Sex: Female
  Weight: 81.72 kg

DRUGS (5)
  1. SYNTHROID [Suspect]
     Indication: HYPOTHYROIDISM
     Route: 048
     Dates: start: 19790101
  2. LOTREL [Concomitant]
     Indication: HYPERTENSION
     Dosage: 5/20 MILLIGRAMS DAILY
     Route: 048
  3. ACIDOPHILUS [Concomitant]
     Indication: IRRITABLE BOWEL SYNDROME
  4. VALERIAN [Concomitant]
     Indication: INSOMNIA
  5. MULTI-VITAMIN [Concomitant]
     Indication: VITAMIN SUPPLEMENTATION

REACTIONS (4)
  - GLAUCOMA [None]
  - RENAL FAILURE [None]
  - SKIN CANDIDA [None]
  - VISUAL IMPAIRMENT [None]
